FAERS Safety Report 22133001 (Version 1)
Quarter: 2023Q1

REPORT INFORMATION
  Report Type: Report from Study
  Country: CA (occurrence: CA)
  Receive Date: 20230324
  Receipt Date: 20230324
  Transmission Date: 20230418
  Serious: Yes (Other)
  Sender: FDA-Public Use
  Company Number: CA-ABBVIE-4700444

PATIENT
  Sex: Male

DRUGS (1)
  1. SKYRIZI [Suspect]
     Active Substance: RISANKIZUMAB-RZAA
     Indication: Crohn^s disease
     Route: 042
     Dates: start: 20230123

REACTIONS (5)
  - Proctectomy [Unknown]
  - Abdominal distension [Unknown]
  - Haemoglobin abnormal [Unknown]
  - Drug ineffective [Unknown]
  - Stoma creation [Unknown]
